FAERS Safety Report 6020675-3 (Version None)
Quarter: 2008Q4

REPORT INFORMATION
  Report Type: 
  Country: None (occurrence: None)
  Receive Date: 20081226
  Receipt Date: 20081226
  Transmission Date: 20090506
  Serious: Yes (Other)
  Sender: FDA-Public Use
  Company Number: None

PATIENT
  Sex: Female
  Weight: 73.4827 kg

DRUGS (1)
  1. BUPROPION HCL [Suspect]
     Indication: ANXIETY DISORDER
     Dosage: 100MG BID ORAL
     Route: 048
     Dates: start: 20081021, end: 20081222

REACTIONS (1)
  - TREMOR [None]
